FAERS Safety Report 17444087 (Version 1)
Quarter: 2020Q1

REPORT INFORMATION
  Report Type: Spontaneous
  Country: US (occurrence: US)
  Receive Date: 20200207
  Receipt Date: 20200207
  Transmission Date: 20200409
  Serious: Yes (Hospitalization)
  Sender: FDA-Public Use
  Company Number: None

PATIENT
  Age: 38 Year
  Sex: Male

DRUGS (5)
  1. METHYLPRED [Concomitant]
     Active Substance: METHYLPREDNISOLONE
  2. ENBREL [Suspect]
     Active Substance: ETANERCEPT
     Indication: PSORIATIC ARTHROPATHY
     Route: 058
     Dates: start: 20191114
  3. LISINOPRIL. [Concomitant]
     Active Substance: LISINOPRIL
  4. OMPERAZOLE [Concomitant]
     Active Substance: OMEPRAZOLE
  5. ATENOLOL. [Concomitant]
     Active Substance: ATENOLOL

REACTIONS (2)
  - Therapy cessation [None]
  - Product availability issue [None]
